FAERS Safety Report 7458470-0 (Version None)
Quarter: 2011Q2

REPORT INFORMATION
  Report Type: 
  Country: None (occurrence: None)
  Receive Date: 20110504
  Receipt Date: 20110426
  Transmission Date: 20111010
  Serious: Yes (Hospitalization)
  Sender: FDA-Public Use
  Company Number: R0001318A

PATIENT
  Sex: Male

DRUGS (9)
  1. FLU TRIVALENT SPLIT + AS03/2 [Suspect]
     Route: 030
     Dates: start: 20081028, end: 20081028
  2. TRIAMTERENE AND HYDROCHLOROTHIAZIDE [Suspect]
     Indication: HYPERTENSION
     Dosage: 75MG PER DAY
     Route: 048
     Dates: start: 20060101, end: 20081205
  3. THIAMINE HCL [Concomitant]
     Indication: VITAMIN B COMPLEX DEFICIENCY
     Dosage: 50MG PER DAY
     Route: 048
     Dates: start: 20000101
  4. ATENOLOL [Concomitant]
     Indication: HYPERTENSION
     Dosage: 25MG PER DAY
     Route: 048
     Dates: start: 20060101, end: 20081205
  5. AMITRIPTYLINE [Concomitant]
     Indication: DEPRESSION
     Dosage: 25MG PER DAY
     Route: 048
     Dates: start: 20000101
  6. ASPIRIN AND DIPYRIDAMOLE [Concomitant]
     Dosage: 225MG PER DAY
     Route: 048
     Dates: start: 20030101, end: 20081205
  7. SIMVASTATIN [Concomitant]
     Dosage: 20MG PER DAY
     Route: 048
     Dates: start: 20030101
  8. QUINAPRIL [Concomitant]
     Indication: HYPERTENSION
     Dosage: 40MG PER DAY
     Route: 048
     Dates: start: 20060101
  9. ALFUZOSIN HCL [Concomitant]
     Indication: BENIGN PROSTATIC HYPERPLASIA
     Dosage: 10MG PER DAY
     Route: 048
     Dates: start: 20030101

REACTIONS (2)
  - ATRIAL FIBRILLATION [None]
  - HYPOTENSION [None]
